FAERS Safety Report 4784415-8 (Version None)
Quarter: 2005Q3

REPORT INFORMATION
  Report Type: 
  Country: None (occurrence: None)
  Receive Date: 20050930
  Receipt Date: 20050920
  Transmission Date: 20060218
  Serious: Yes (Other)
  Sender: FDA-Public Use
  Company Number: US-ABBOTT-05P-163-0311448-00

PATIENT
  Sex: Male
  Weight: 136 kg

DRUGS (16)
  1. HUMIRA [Suspect]
     Indication: RHEUMATOID ARTHRITIS
     Route: 058
     Dates: start: 20050811, end: 20050811
  2. COUMADIN [Concomitant]
     Indication: ANTICOAGULANT THERAPY
     Route: 048
  3. COUMADIN [Concomitant]
     Route: 048
  4. OXAPROZIN [Concomitant]
     Indication: ANTIINFLAMMATORY THERAPY
     Route: 048
  5. PREDNISONE [Concomitant]
     Indication: DRUG USE FOR UNKNOWN INDICATION
     Dosage: 5 MG IN AM AND 5 MG IN PM
     Route: 048
  6. ASPIRIN [Concomitant]
     Indication: DRUG USE FOR UNKNOWN INDICATION
     Route: 048
  7. POTASSIUM CHLORIDE [Concomitant]
     Indication: MINERAL SUPPLEMENTATION
     Route: 048
  8. FUROSEMIDE [Concomitant]
     Indication: DIURETIC THERAPY
     Route: 048
  9. GLIBENCLAMIDE [Concomitant]
     Indication: DRUG USE FOR UNKNOWN INDICATION
     Dosage: 10 MG IN AM, 10 MG IN PM
     Route: 048
  10. ALPRAZOLAM [Concomitant]
     Indication: PANIC ATTACK
     Route: 048
  11. IMIPRAMINE [Concomitant]
     Indication: DRUG USE FOR UNKNOWN INDICATION
     Route: 048
  12. RANITIDINE [Concomitant]
     Indication: GASTRIC DISORDER
     Route: 048
  13. PROBENECID [Concomitant]
     Indication: GOUT
     Dosage: 1/2 TABLET IN AM, 1/2 TABLET IN PM
     Route: 048
  14. ACETAMINOPHEN W/ CODEINE [Concomitant]
     Indication: PAIN
     Route: 048
  15. FENTANYL [Concomitant]
     Indication: PAIN
     Dosage: 1 PATCH EVERY THREE DAYS
  16. LEVOFLOXACIN [Concomitant]
     Indication: SEPSIS
     Dosage: ONCE DAILY FOR 20 DAYS
     Route: 048
     Dates: start: 20050817, end: 20050905

REACTIONS (5)
  - ABASIA [None]
  - FURUNCLE [None]
  - HEADACHE [None]
  - MALAISE [None]
  - SEPSIS [None]
